FAERS Safety Report 12448660 (Version 1)
Quarter: 2016Q2

REPORT INFORMATION
  Report Type: Not Available
  Country: None (occurrence: US)
  Receive Date: 20160608
  Receipt Date: 20160608
  Transmission Date: 20160815
  Serious: No
  Sender: FDA-Public Use
  Company Number: US-AKORN-31813

PATIENT
  Age: 48 Year
  Sex: Female

DRUGS (1)
  1. COGENTIN [Suspect]
     Active Substance: BENZTROPINE MESYLATE

REACTIONS (4)
  - Malaise [None]
  - Lethargy [None]
  - Limb discomfort [None]
  - Depression [None]
